FAERS Safety Report 18683813 (Version 11)
Quarter: 2021Q3

REPORT INFORMATION
  Report Type: Report from Study
  Country: CN (occurrence: CN)
  Receive Date: 20201230
  Receipt Date: 20210908
  Transmission Date: 20211014
  Serious: Yes (Death, Hospitalization)
  Sender: FDA-Public Use
  Company Number: CN-ROCHE-2738556

PATIENT
  Age: 57 Year
  Sex: Male
  Weight: 63.4 kg

DRUGS (47)
  1. RITUXIMAB. [Suspect]
     Active Substance: RITUXIMAB
     Indication: DIFFUSE LARGE B-CELL LYMPHOMA
     Dosage: START DATE OF MOST RECENT DOSE (633.75 MG) OF RITUXIMAB PRIOR TO AE: 10/NOV/2020 AND SAE: 03/DEC/202
     Route: 042
     Dates: start: 20200928
  2. BENDAMUSTINE [Suspect]
     Active Substance: BENDAMUSTINE
     Indication: DIFFUSE LARGE B-CELL LYMPHOMA
     Dosage: START DATE OF MOST RECENT DOSE (152.1 MG) OF BENDAMUSTINE PRIOR TO AE: 04/DEC/2020 AND SAE 11/NOV/20
     Route: 042
     Dates: start: 20200929
  3. REDUCED GLUTATHIONE SODIUM [Concomitant]
     Active Substance: GLUTATHIONE
     Dates: start: 20201203, end: 20201206
  4. LEUCOGEN [Concomitant]
     Active Substance: LEUCOGEN
     Indication: LEUKOCYTOSIS
     Dates: start: 20201117, end: 20201118
  5. DIPHENHYDRAMINE HYDROCHLORIDE. [Concomitant]
     Active Substance: DIPHENHYDRAMINE HYDROCHLORIDE
     Indication: PROPHYLAXIS
     Dates: start: 20201020, end: 20201020
  6. IBUPROFEN SUSTAINED RELEASE [Concomitant]
     Dates: start: 20210105, end: 20210105
  7. TROPISETRON HYDROCHLORIDE [Concomitant]
     Active Substance: TROPISETRON HYDROCHLORIDE
     Dates: start: 20201203, end: 20201206
  8. FUROSEMIDE. [Concomitant]
     Active Substance: FUROSEMIDE
     Dates: start: 20201110, end: 20201110
  9. COATED ALDEHYDE OXYSTARCH [Concomitant]
     Dates: start: 20201217
  10. COMPOUND SULFAMETHOXAZOLE [Concomitant]
     Active Substance: SULFAMETHOXAZOLE
     Dates: start: 20201021
  11. ESOMEPRAZOLE SODIUM. [Concomitant]
     Active Substance: ESOMEPRAZOLE SODIUM
     Dates: start: 20201110, end: 20201111
  12. ALLOPURINOL. [Concomitant]
     Active Substance: ALLOPURINOL
     Dates: start: 20201020, end: 20201020
  13. RECOMBINANT HUMAN GRANULOCYTE/MACROPHAGE COLONY?STIMULATING FACTOR FOR [Concomitant]
     Dates: start: 20201215, end: 20201216
  14. ESOMEPRAZOLE SODIUM. [Concomitant]
     Active Substance: ESOMEPRAZOLE SODIUM
     Dates: start: 20201223, end: 20201223
  15. LACTULOSE. [Concomitant]
     Active Substance: LACTULOSE
     Indication: CONSTIPATION
     Dates: start: 20201020, end: 20201022
  16. LIAN HUA QING WEN JIAO NANG [Concomitant]
     Indication: UPPER RESPIRATORY TRACT INFECTION
     Dates: start: 20201117, end: 20201121
  17. PREDNISONE ACETATE [Concomitant]
     Active Substance: PREDNISONE ACETATE
     Indication: PROPHYLAXIS
     Route: 048
     Dates: start: 20201020, end: 20201020
  18. DIPHENHYDRAMINE HYDROCHLORIDE. [Concomitant]
     Active Substance: DIPHENHYDRAMINE HYDROCHLORIDE
     Dates: start: 20201203, end: 20201203
  19. FUROSEMIDE. [Concomitant]
     Active Substance: FUROSEMIDE
     Indication: PROPHYLAXIS
     Dates: start: 20201020, end: 20201020
  20. COMPOUND ELECTROLYTES AND GLUCOSE INJECTION MG3 [Concomitant]
     Dates: start: 20201206, end: 20201206
  21. RECOMBINANT HUMAN GRANULOCYTE/MACROPHAGE COLONY?STIMULATING FACTOR FOR [Concomitant]
     Indication: LEUKOPENIA
     Dates: start: 20201206, end: 20201210
  22. POLATUZUMAB VEDOTIN. [Suspect]
     Active Substance: POLATUZUMAB VEDOTIN
     Indication: DIFFUSE LARGE B-CELL LYMPHOMA
     Dosage: START DATE OF MOST RECENT DOSE (114.12 MG) OF STUDY DRUG PRIOR TO AE: 10/NOV/2020 AND SAE: 03/DEC/20
     Route: 042
     Dates: start: 20200929
  23. ESOMEPRAZOLE SODIUM. [Concomitant]
     Active Substance: ESOMEPRAZOLE SODIUM
     Indication: PROPHYLAXIS
     Dates: start: 20201020, end: 20201021
  24. CHAI YIN KOU FU YE [Concomitant]
     Indication: UPPER RESPIRATORY TRACT INFECTION
     Dates: start: 20201117, end: 20201121
  25. IBUPROFEN SUSTAINED RELEASE [Concomitant]
     Dates: start: 20201110, end: 20201110
  26. FUROSEMIDE. [Concomitant]
     Active Substance: FUROSEMIDE
     Dates: start: 20201203, end: 20201203
  27. DEZOCINE [Concomitant]
     Active Substance: DEZOCINE
     Indication: PAIN
     Dates: start: 20201218, end: 20201220
  28. RECOMBINANT HUMAN GRANULOCYTE/MACROPHAGE COLONY?STIMULATING FACTOR FOR [Concomitant]
     Dates: start: 20201212, end: 20201213
  29. GANCICLOVIR. [Concomitant]
     Active Substance: GANCICLOVIR
     Route: 065
     Dates: start: 20200928
  30. COMPOUND SULFAMETHOXAZOLE [Concomitant]
     Active Substance: SULFAMETHOXAZOLE
     Dates: start: 20200928
  31. ESOMEPRAZOLE SODIUM. [Concomitant]
     Active Substance: ESOMEPRAZOLE SODIUM
     Dates: start: 20201203, end: 20201206
  32. REDUCED GLUTATHIONE SODIUM [Concomitant]
     Active Substance: GLUTATHIONE
     Indication: PROPHYLAXIS
     Dates: start: 20201020, end: 20201021
  33. REDUCED GLUTATHIONE SODIUM [Concomitant]
     Active Substance: GLUTATHIONE
     Dates: start: 20201110, end: 20201111
  34. PREDNISONE ACETATE [Concomitant]
     Active Substance: PREDNISONE ACETATE
     Route: 048
     Dates: start: 20201110, end: 20201110
  35. TROPISETRON HYDROCHLORIDE [Concomitant]
     Active Substance: TROPISETRON HYDROCHLORIDE
     Indication: PROPHYLAXIS
     Dates: start: 20201020, end: 20201021
  36. TROPISETRON HYDROCHLORIDE [Concomitant]
     Active Substance: TROPISETRON HYDROCHLORIDE
     Dates: start: 20201110, end: 20201111
  37. ALLOPURINOL. [Concomitant]
     Active Substance: ALLOPURINOL
     Dates: start: 20201110, end: 20201112
  38. SODIUM BICARBONATE. [Concomitant]
     Active Substance: SODIUM BICARBONATE
     Dates: start: 20201110, end: 20201111
  39. IBUPROFEN SUSTAINED RELEASE [Concomitant]
     Indication: PROPHYLAXIS
     Dates: start: 20201020, end: 20201020
  40. AMBROXOL HYDROCHLORIDE [Concomitant]
     Active Substance: AMBROXOL HYDROCHLORIDE
     Indication: PRODUCTIVE COUGH
     Dates: start: 20201223, end: 20201223
  41. RECOMBINANT HUMAN GRANULOCYTE/MACROPHAGE COLONY?STIMULATING FACTOR FOR [Concomitant]
     Indication: LEUKOCYTOSIS
     Dates: start: 20201117, end: 20201120
  42. DIPHENHYDRAMINE HYDROCHLORIDE. [Concomitant]
     Active Substance: DIPHENHYDRAMINE HYDROCHLORIDE
     Dates: start: 20201110, end: 20201110
  43. GANCICLOVIR. [Concomitant]
     Active Substance: GANCICLOVIR
     Route: 065
     Dates: start: 20201021
  44. SODIUM BICARBONATE. [Concomitant]
     Active Substance: SODIUM BICARBONATE
     Dates: start: 20201020, end: 20201021
  45. PREDNISONE ACETATE [Concomitant]
     Active Substance: PREDNISONE ACETATE
     Route: 048
     Dates: start: 20201203, end: 20201203
  46. IBUPROFEN SUSTAINED RELEASE [Concomitant]
     Indication: PYREXIA
     Dates: start: 20201203, end: 20201203
  47. COMPOUND ELECTROLYTES AND GLUCOSE INJECTION MG3 [Concomitant]
     Dates: start: 20201223, end: 20201223

REACTIONS (1)
  - Hydronephrosis [Recovered/Resolved]

NARRATIVE: CASE EVENT DATE: 20201218
